FAERS Safety Report 8188701-3 (Version None)
Quarter: 2012Q1

REPORT INFORMATION
  Report Type: 
  Country: None (occurrence: None)
  Receive Date: 20120306
  Receipt Date: 20120302
  Transmission Date: 20120608
  Serious: No
  Sender: FDA-Public Use
  Company Number: US-PFIZER INC-2012057106

PATIENT
  Sex: Female
  Weight: 78.9 kg

DRUGS (4)
  1. LYRICA [Suspect]
     Indication: FIBROMYALGIA
     Dosage: UNK
     Route: 048
     Dates: start: 20070101
  2. LYRICA [Suspect]
     Dosage: 150 MG, 2X/DAY
     Route: 048
  3. CELEXA [Concomitant]
     Indication: ANXIETY
     Dosage: 20 MG, DAILY
  4. LYRICA [Suspect]
     Dosage: 150 MG, 3X/DAY

REACTIONS (1)
  - PAIN [None]
